FAERS Safety Report 14952207 (Version 1)
Quarter: 2018Q2

REPORT INFORMATION
  Report Type: Report from Study
  Country: JP (occurrence: JP)
  Receive Date: 20180530
  Receipt Date: 20180530
  Transmission Date: 20180711
  Serious: Yes (Death, Hospitalization)
  Sender: FDA-Public Use
  Company Number: JP-TEVA-2018-JP-897778

PATIENT
  Age: 62 Year
  Sex: Male

DRUGS (10)
  1. PREDNISOLONE. [Suspect]
     Active Substance: PREDNISOLONE
     Indication: CARDIAC SARCOIDOSIS
  2. ENALAPRIL [Concomitant]
     Active Substance: ENALAPRIL
     Indication: VENTRICULAR TACHYCARDIA
     Dosage: 5 MILLIGRAM DAILY;
     Route: 065
  3. LANSOPRAZOLE. [Concomitant]
     Active Substance: LANSOPRAZOLE
     Indication: CARDIAC SARCOIDOSIS
  4. METOPROLOL. [Concomitant]
     Active Substance: METOPROLOL
     Indication: VENTRICULAR TACHYCARDIA
     Dosage: 20 MILLIGRAM DAILY;
     Route: 065
  5. PREDNISOLONE. [Suspect]
     Active Substance: PREDNISOLONE
     Indication: VENTRICULAR TACHYCARDIA
     Dosage: 10 MILLIGRAM DAILY;
     Route: 065
  6. AMIODARONE [Suspect]
     Active Substance: AMIODARONE
     Indication: CARDIAC SARCOIDOSIS
  7. ENALAPRIL [Concomitant]
     Active Substance: ENALAPRIL
     Indication: CARDIAC SARCOIDOSIS
  8. AMIODARONE [Suspect]
     Active Substance: AMIODARONE
     Indication: VENTRICULAR TACHYCARDIA
     Dosage: 150 MILLIGRAM DAILY;
     Route: 065
  9. METOPROLOL. [Concomitant]
     Active Substance: METOPROLOL
     Indication: CARDIAC SARCOIDOSIS
  10. LANSOPRAZOLE. [Concomitant]
     Active Substance: LANSOPRAZOLE
     Indication: VENTRICULAR TACHYCARDIA
     Dosage: 15 MILLIGRAM DAILY;
     Route: 065

REACTIONS (5)
  - Drug-induced liver injury [Fatal]
  - Ascites [Unknown]
  - Splenomegaly [Unknown]
  - Hepatic failure [Fatal]
  - Hepatic cirrhosis [Fatal]
